FAERS Safety Report 17777025 (Version 1)
Quarter: 2020Q2

REPORT INFORMATION
  Report Type: Report from Study
  Country: US (occurrence: US)
  Receive Date: 20200513
  Receipt Date: 20200513
  Transmission Date: 20200714
  Serious: No
  Sender: FDA-Public Use
  Company Number: US-ACADIA PHARMACEUTICALS INC.-ACA-2019-014262

PATIENT
  Age: 88 Year
  Sex: Female
  Weight: 68 kg

DRUGS (1)
  1. NUPLAZID [Suspect]
     Active Substance: PIMAVANSERIN TARTRATE
     Indication: PRODUCT USED FOR UNKNOWN INDICATION
     Dosage: 34 MG, QD
     Route: 048
     Dates: start: 201909

REACTIONS (3)
  - Psychomotor hyperactivity [Not Recovered/Not Resolved]
  - Insomnia [Not Recovered/Not Resolved]
  - Hallucination [Not Recovered/Not Resolved]

NARRATIVE: CASE EVENT DATE: 201909
